FAERS Safety Report 8810176 (Version 2)
Quarter: 2012Q4

REPORT INFORMATION
  Report Type: 
  Country: US (occurrence: US)
  Receive Date: 20120926
  Receipt Date: 20121113
  Transmission Date: 20130627
  Serious: Yes (Other)
  Sender: FDA-Public Use
  Company Number: PHEH2012US018468

PATIENT
  Sex: Female
  Weight: 48.99 kg

DRUGS (1)
  1. DIOVAN HCT [Suspect]
     Dosage: 1 DF (80mg valsartan/unknown HCTZ), QD

REACTIONS (1)
  - Hypoacusis [Unknown]
